FAERS Safety Report 5427593-X (Version None)
Quarter: 2007Q3

REPORT INFORMATION
  Report Type: 
  Country: None (occurrence: None)
  Receive Date: 20070828
  Receipt Date: 20070820
  Transmission Date: 20080115
  Serious: Yes (Hospitalization)
  Sender: FDA-Public Use
  Company Number: GB-AVENTIS-200717670GDDC

PATIENT
  Sex: Female

DRUGS (2)
  1. TAXOTERE [Suspect]
     Route: 041
  2. KALETRA [Suspect]
     Dosage: DOSE: UNK

REACTIONS (7)
  - ARTHRALGIA [None]
  - BLISTER [None]
  - DRUG INTERACTION [None]
  - MYALGIA [None]
  - NEUTROPENIA [None]
  - OEDEMA [None]
  - RASH [None]
